FAERS Safety Report 8055889-4 (Version None)
Quarter: 2012Q1

REPORT INFORMATION
  Report Type: 
  Country: None (occurrence: None)
  Receive Date: 20120119
  Receipt Date: 20120111
  Transmission Date: 20120608
  Serious: Yes (Hospitalization, Disabling, Other)
  Sender: FDA-Public Use
  Company Number: US-PURDUE-USA-2011-0079750

PATIENT
  Sex: Female
  Weight: 58.957 kg

DRUGS (1)
  1. BUTRANS [Suspect]
     Indication: PAIN
     Dosage: 5 MCG/HR, SEE TEXT
     Route: 062
     Dates: start: 20111114, end: 20111207

REACTIONS (7)
  - HUMERUS FRACTURE [None]
  - SOMNOLENCE [None]
  - UNRESPONSIVE TO STIMULI [None]
  - HAND FRACTURE [None]
  - FALL [None]
  - INCORRECT DOSE ADMINISTERED [None]
  - CEREBROVASCULAR ACCIDENT [None]
